FAERS Safety Report 6250045-4 (Version None)
Quarter: 2009Q2

REPORT INFORMATION
  Report Type: 
  Country: None (occurrence: None)
  Receive Date: 20090625
  Receipt Date: 20090616
  Transmission Date: 20091009
  Serious: Yes (Other)
  Sender: FDA-Public Use
  Company Number: 8048011

PATIENT
  Age: 23 Year
  Sex: Male

DRUGS (2)
  1. KEPPRA [Suspect]
     Dosage: 7500 MG ONCE PO
     Route: 048
     Dates: start: 20090616, end: 20090616
  2. VALPROIC ACID [Suspect]
     Dosage: 7500 MG ONCE PO
     Route: 048
     Dates: start: 20090616, end: 20090616

REACTIONS (3)
  - INCORRECT DOSE ADMINISTERED [None]
  - SUICIDE ATTEMPT [None]
  - TACHYCARDIA [None]
